FAERS Safety Report 8583412-4 (Version None)
Quarter: 2012Q3

REPORT INFORMATION
  Report Type: 
  Country: None (occurrence: None)
  Receive Date: 20120809
  Receipt Date: 20120725
  Transmission Date: 20120928
  Serious: Yes (Other)
  Sender: FDA-Public Use
  Company Number: CHPA2012US016718

PATIENT
  Age: 34 Year
  Sex: Male
  Weight: 88.889 kg

DRUGS (1)
  1. NICOTINE [Suspect]
     Indication: SMOKING CESSATION THERAPY
     Dosage: 14 MG, QD
     Route: 062
     Dates: start: 20120501, end: 20120601

REACTIONS (4)
  - APPLICATION SITE NODULE [None]
  - WEIGHT DECREASED [None]
  - DIABETES MELLITUS [None]
  - APPLICATION SITE PRURITUS [None]
